FAERS Safety Report 4299774-2 (Version None)
Quarter: 2004Q1

REPORT INFORMATION
  Report Type: 
  Country: None (occurrence: None)
  Receive Date: 20040126
  Receipt Date: 20031218
  Transmission Date: 20041129
  Serious: No
  Sender: FDA-Public Use
  Company Number: USA031152488

PATIENT
  Age: 52 Year
  Sex: Female
  Weight: 67 kg

DRUGS (4)
  1. STRATTERA [Suspect]
     Indication: ATTENTION DEFICIT/HYPERACTIVITY DISORDER
     Dosage: 40 MG/DAY
     Dates: start: 20031112
  2. EFFEXOR [Concomitant]
  3. ADDERALL 10 [Concomitant]
  4. RITALIN [Concomitant]

REACTIONS (3)
  - HOT FLUSH [None]
  - SLUGGISHNESS [None]
  - TIC [None]
